FAERS Safety Report 19464350 (Version 2)
Quarter: 2025Q1

REPORT INFORMATION
  Report Type: Spontaneous
  Country: IT (occurrence: IT)
  Receive Date: 20210627
  Receipt Date: 20250213
  Transmission Date: 20250409
  Serious: Yes (Other)
  Sender: AUROBINDO
  Company Number: IT-STADA-226578

PATIENT
  Age: 20 Year
  Sex: Male

DRUGS (9)
  1. ARIPIPRAZOLE [Suspect]
     Active Substance: ARIPIPRAZOLE
     Indication: Bipolar disorder
     Dosage: 5 MILLIGRAM, ONCE A DAY INTRODUCED ON FOURTH DAY
     Route: 065
  2. ARIPIPRAZOLE [Suspect]
     Active Substance: ARIPIPRAZOLE
     Dosage: 7.5 MILLIGRAM, ONCE A DAY, INCREASED TO 7.5 MG ON THE SIXTH DAY
     Route: 065
  3. LITHIUM CARBONATE [Concomitant]
     Active Substance: LITHIUM CARBONATE
     Indication: Bipolar disorder
     Dosage: 300 MILLIGRAM, ONCE A DAY, ON THE SECOND DAY, CARBOLITHIUM 300 MG/DAY WAS ADDED
     Route: 065
  4. LITHIUM CARBONATE [Concomitant]
     Active Substance: LITHIUM CARBONATE
     Dosage: 600 MILLIGRAM, ONCE A DAY, ON FOURTH DAY, CARBOLITHIUM INCREASED TO 600 MG/DAY
     Route: 065
  5. GABAPENTIN [Concomitant]
     Active Substance: GABAPENTIN
     Indication: Hiccups
     Route: 065
  6. SERTRALINE [Concomitant]
     Active Substance: SERTRALINE HYDROCHLORIDE
     Indication: Depressive symptom
     Dosage: 50 MILLIGRAM, ONCE A DAY
     Route: 065
  7. SERTRALINE [Concomitant]
     Active Substance: SERTRALINE HYDROCHLORIDE
     Dosage: 75 MILLIGRAM, ONCE A DAY ON THE SECOND DAY, SERTRALINE WAS INCREASED TO 75 MG/DAY
     Route: 065
  8. VALPROIC ACID [Concomitant]
     Active Substance: VALPROIC ACID
     Indication: Depressive symptom
     Dosage: 50 MILLIGRAM, ONCE A DAY
     Route: 065
  9. PERPHENAZINE [Concomitant]
     Active Substance: PERPHENAZINE
     Indication: Product used for unknown indication
     Dosage: 4 MILLIGRAM, ONCE A DAY
     Route: 065

REACTIONS (2)
  - Hiccups [Recovered/Resolved]
  - Off label use [Unknown]
